FAERS Safety Report 9283812 (Version 3)
Quarter: 2013Q3

REPORT INFORMATION
  Report Type: Spontaneous
  Country: US (occurrence: None)
  Receive Date: 20130506
  Receipt Date: 20130920
  Transmission Date: 20140515
  Serious: Yes (Hospitalization, Disabling, Other)
  Sender: FDA-Public Use
  Company Number: AUR-APL-2013-03599

PATIENT
  Age: 58 Year
  Sex: Female
  Weight: 132.45 kg

DRUGS (2)
  1. GABAPENTIN [Suspect]
     Indication: HEADACHE
     Route: 048
     Dates: start: 2012, end: 201301
  2. DEPAKOTE(VALPROATE SEMISODIUM) [Concomitant]

REACTIONS (4)
  - Abasia [None]
  - Anxiety [None]
  - Quality of life decreased [None]
  - Depression [None]
